FAERS Safety Report 14203359 (Version 12)
Quarter: 2018Q4

REPORT INFORMATION
  Report Type: Report from Study
  Country: None (occurrence: US)
  Receive Date: 20171120
  Receipt Date: 20181206
  Transmission Date: 20190204
  Serious: Yes (Other)
  Sender: FDA-Public Use
  Company Number: US-ABBVIE-17K-163-2067553-00

PATIENT
  Sex: Female

DRUGS (3)
  1. HUMIRA [Suspect]
     Active Substance: ADALIMUMAB
     Route: 058
  2. HUMIRA [Suspect]
     Active Substance: ADALIMUMAB
     Route: 058
  3. HUMIRA [Suspect]
     Active Substance: ADALIMUMAB
     Indication: PSORIASIS
     Route: 058
     Dates: end: 2017

REACTIONS (33)
  - Tendonitis [Unknown]
  - Joint swelling [Not Recovered/Not Resolved]
  - Post procedural swelling [Recovering/Resolving]
  - Migraine [Unknown]
  - Road traffic accident [Unknown]
  - Blood cholesterol increased [Unknown]
  - Basal cell carcinoma [Recovered/Resolved]
  - Joint effusion [Not Recovered/Not Resolved]
  - Head injury [Unknown]
  - Hyperkeratosis [Recovering/Resolving]
  - Arthropathy [Not Recovered/Not Resolved]
  - Arthritis [Recovered/Resolved]
  - Arthralgia [Recovered/Resolved]
  - Cartilage atrophy [Not Recovered/Not Resolved]
  - Hiatus hernia [Recovering/Resolving]
  - Weight abnormal [Unknown]
  - Injection site pain [Unknown]
  - Pneumonia [Unknown]
  - Sleep apnoea syndrome [Unknown]
  - Procedural pain [Recovering/Resolving]
  - Burning sensation [Unknown]
  - Back pain [Unknown]
  - Psoriasis [Recovering/Resolving]
  - Limb injury [Unknown]
  - Nail avulsion [Not Recovered/Not Resolved]
  - Stress [Unknown]
  - Osteoarthritis [Unknown]
  - Rotator cuff syndrome [Not Recovered/Not Resolved]
  - Incision site pain [Unknown]
  - Fatigue [Recovering/Resolving]
  - Gastrooesophageal reflux disease [Unknown]
  - Arthritis [Not Recovered/Not Resolved]
  - Pain [Unknown]

NARRATIVE: CASE EVENT DATE: 2017
